FAERS Safety Report 16928662 (Version 2)
Quarter: 2020Q3

REPORT INFORMATION
  Report Type: Report from Study
  Country: IN (occurrence: IN)
  Receive Date: 20191017
  Receipt Date: 20191023
  Transmission Date: 20201105
  Serious: Yes (Hospitalization)
  Sender: FDA-Public Use
  Company Number: IN-ROCHE-2436520

PATIENT
  Age: 30 Year
  Sex: Male
  Weight: 62.5 kg

DRUGS (1)
  1. EMICIZUMAB. [Suspect]
     Active Substance: EMICIZUMAB
     Indication: FACTOR VIII DEFICIENCY
     Dosage: ON 07/OCT/2019 AT 8:00, HE RECEIVED MOST RECENT DOSE OF EMICIZUMAB PRIOR TO SAE ONSET.
     Route: 058
     Dates: start: 20180618

REACTIONS (1)
  - Epistaxis [Recovered/Resolved]

NARRATIVE: CASE EVENT DATE: 20191007
